FAERS Safety Report 8839614 (Version 1)
Quarter: 2012Q4

REPORT INFORMATION
  Report Type: Spontaneous
  Country: US (occurrence: None)
  Receive Date: 20121011
  Receipt Date: 20121011
  Transmission Date: 20130627
  Serious: No
  Sender: FDA-Public Use
  Company Number: None

PATIENT
  Age: 63 Year
  Sex: Female
  Weight: 104.33 kg

DRUGS (1)
  1. ZETIA [Suspect]
     Indication: HIGH CHOLESTEROL
     Route: 048
     Dates: start: 20120101, end: 20121001

REACTIONS (6)
  - Myalgia [None]
  - Nausea [None]
  - Fatigue [None]
  - Hypoaesthesia [None]
  - Hypoaesthesia [None]
  - Gout [None]
